FAERS Safety Report 4401443-2 (Version None)
Quarter: 2004Q3

REPORT INFORMATION
  Report Type: 
  Country: None (occurrence: None)
  Receive Date: 20040907
  Receipt Date: 20040507
  Transmission Date: 20050211
  Serious: No
  Sender: FDA-Public Use
  Company Number: US-BRISTOL-MYERS SQUIBB COMPANY-12582003

PATIENT
  Age: 79 Year
  Sex: Male
  Weight: 59 kg

DRUGS (10)
  1. COUMADIN [Suspect]
     Indication: ATRIAL FIBRILLATION
     Dosage: 3 MG ON MON. AND WED. AND 4 MG ON TUES., THURS., FRI., SAT. AND SUN.
     Route: 048
     Dates: start: 19980101
  2. COUMADIN [Suspect]
     Indication: MITRAL VALVE PROLAPSE
     Dosage: 3 MG ON MON. AND WED. AND 4 MG ON TUES., THURS., FRI., SAT. AND SUN.
     Route: 048
     Dates: start: 19980101
  3. TOPROL-XL [Concomitant]
  4. TIKOSYN [Concomitant]
  5. APAMIDE [Concomitant]
  6. PRAVACHOL [Concomitant]
  7. ASPIRIN [Concomitant]
  8. GLUCOSAMINE [Concomitant]
  9. CHONDROITIN [Concomitant]
  10. MULTI-VITAMIN [Concomitant]

REACTIONS (2)
  - DIZZINESS [None]
  - INTERNATIONAL NORMALISED RATIO DECREASED [None]
